FAERS Safety Report 26091057 (Version 2)
Quarter: 2025Q4

REPORT INFORMATION
  Report Type: Report from Study
  Country: CO (occurrence: None)
  Receive Date: 20251126
  Receipt Date: 20251205
  Transmission Date: 20260118
  Serious: Yes (Hospitalization)
  Sender: UCB
  Company Number: CO-UCBSA-2025074273

PATIENT
  Age: 43 Year

DRUGS (1)
  1. CIMZIA [Suspect]
     Active Substance: CERTOLIZUMAB PEGOL
     Indication: Rheumatoid arthritis
     Dosage: 400 MILLIGRAM, EV 30 DAYS

REACTIONS (3)
  - Infection [Recovered/Resolved]
  - Gallbladder operation [Not Recovered/Not Resolved]
  - Off label use [Unknown]
